FAERS Safety Report 4747958-9 (Version None)
Quarter: 2005Q3

REPORT INFORMATION
  Report Type: 
  Country: None (occurrence: None)
  Receive Date: 20050816
  Receipt Date: 20050804
  Transmission Date: 20060218
  Serious: Yes (Hospitalization, Other)
  Sender: FDA-Public Use
  Company Number: TPA2005A00890

PATIENT
  Age: 61 Year
  Sex: Male
  Weight: 72.5755 kg

DRUGS (8)
  1. ACTOS [Suspect]
     Indication: DIABETES MELLITUS NON-INSULIN-DEPENDENT
     Dosage: 30 MG, 1 IN 1 D, PER ORAL
     Route: 048
     Dates: start: 20040901, end: 20050601
  2. PLAVIX [Concomitant]
  3. COREG [Concomitant]
  4. LIPITOR [Concomitant]
  5. IMDUR [Concomitant]
  6. LANTUS [Concomitant]
  7. ACCUPRIL [Concomitant]
  8. ASPIRIN [Concomitant]

REACTIONS (13)
  - CHEST PAIN [None]
  - CORONARY ARTERY OCCLUSION [None]
  - DRUG INEFFECTIVE [None]
  - DYSPNOEA [None]
  - EYELID OEDEMA [None]
  - GASTROINTESTINAL DISORDER [None]
  - HYPOTENSION [None]
  - OEDEMA PERIPHERAL [None]
  - PAIN IN EXTREMITY [None]
  - SENSATION OF FOREIGN BODY [None]
  - SKIN DISCOLOURATION [None]
  - SPEECH DISORDER [None]
  - WEIGHT INCREASED [None]
